FAERS Safety Report 10439034 (Version 2)
Quarter: 2014Q3

REPORT INFORMATION
  Report Type: Spontaneous
  Country: US (occurrence: US)
  Receive Date: 20140908
  Receipt Date: 20140924
  Transmission Date: 20150326
  Serious: Yes (Other)
  Sender: FDA-Public Use
  Company Number: US-SA-2014SA120147

PATIENT
  Age: 55 Year
  Sex: Male

DRUGS (6)
  1. LANTUS [Suspect]
     Active Substance: INSULIN GLARGINE
     Indication: DIABETES MELLITUS
     Dosage: DOSE:46 UNIT(S)
     Route: 065
  2. LANTUS SOLOSTAR [Suspect]
     Active Substance: INSULIN GLARGINE
     Indication: TYPE 2 DIABETES MELLITUS
     Route: 065
  3. INSULIN PEN NOS [Concomitant]
     Active Substance: INSULIN NOS
  4. SOLOSTAR [Concomitant]
     Active Substance: DEVICE
  5. LANTUS SOLOSTAR [Suspect]
     Active Substance: INSULIN GLARGINE
     Indication: TYPE 2 DIABETES MELLITUS
     Dosage: DOSE:46 UNIT(S)
     Route: 065
     Dates: start: 2013
  6. SOLOSTAR [Concomitant]
     Active Substance: DEVICE
     Dates: start: 2013

REACTIONS (4)
  - Cardiac pacemaker insertion [Unknown]
  - Cardioversion [Unknown]
  - Frustration [Recovered/Resolved]
  - Drug dose omission [Unknown]

NARRATIVE: CASE EVENT DATE: 2013
